FAERS Safety Report 14968954 (Version 1)
Quarter: 2018Q2

REPORT INFORMATION
  Report Type: Report from Study
  Country: ES (occurrence: ES)
  Receive Date: 20180604
  Receipt Date: 20180604
  Transmission Date: 20180711
  Serious: Yes (Hospitalization)
  Sender: FDA-Public Use
  Company Number: ES-TEVA-2018-ES-900272

PATIENT
  Age: 83 Year
  Sex: Male

DRUGS (4)
  1. CARVEDILOL (2431A) [Concomitant]
     Indication: HYPERTENSION
     Dosage: 6.5 MILLIGRAM DAILY;
     Route: 048
     Dates: start: 20161128, end: 20161129
  2. CARVEDILOL. [Suspect]
     Active Substance: CARVEDILOL
     Indication: HYPERTENSION
     Dosage: 12.5 MILLIGRAM DAILY;
     Route: 048
     Dates: start: 20161130, end: 20161217
  3. TORASEMIDA (2351A) [Concomitant]
     Indication: CARDIAC FAILURE
     Dosage: 7.5 MILLIGRAM DAILY;
     Route: 048
     Dates: start: 201612, end: 201612
  4. ALDACTONE 100 MG COMPRIMIDOS RECUBIERTOS CON PELICULA , 20 COMPRIMIDOS [Concomitant]
     Indication: CARDIAC FAILURE
     Dosage: 100 MILLIGRAM DAILY;
     Route: 048
     Dates: start: 20161124

REACTIONS (1)
  - Sinus bradycardia [Recovered/Resolved]

NARRATIVE: CASE EVENT DATE: 201612
